FAERS Safety Report 8557233-2 (Version None)
Quarter: 2012Q3

REPORT INFORMATION
  Report Type: 
  Country: None (occurrence: None)
  Receive Date: 20120726
  Receipt Date: 20120726
  Transmission Date: 20120928
  Serious: Yes (Hospitalization)
  Sender: FDA-Public Use
  Company Number: None

PATIENT
  Age: 70 Year
  Sex: Male
  Weight: 74.8435 kg

DRUGS (2)
  1. EVEROLIMUS 5MG PO QD [Suspect]
     Indication: LYMPHOMA
     Dosage: 5MG PO QD
     Route: 048
     Dates: start: 20120307, end: 20120724
  2. BORTEZOMIB [Suspect]
     Indication: LYMPHOMA
     Dosage: BORTEZOMIB 2.6MG IV
     Route: 042
     Dates: start: 20120307, end: 20120720

REACTIONS (2)
  - BACK PAIN [None]
  - INTERVERTEBRAL DISC PROTRUSION [None]
